FAERS Safety Report 11159046 (Version 1)
Quarter: 2015Q2

REPORT INFORMATION
  Report Type: Spontaneous
  Country: US (occurrence: US)
  Receive Date: 20150603
  Receipt Date: 20150603
  Transmission Date: 20150821
  Serious: No
  Sender: FDA-Public Use
  Company Number: US-TARO-2014P1004388

PATIENT
  Sex: Male

DRUGS (1)
  1. IMIQUIMOD CREAM 5% [Suspect]
     Active Substance: IMIQUIMOD
     Indication: MOLLUSCUM CONTAGIOSUM
     Route: 061

REACTIONS (3)
  - Application site burn [Not Recovered/Not Resolved]
  - Off label use [Not Recovered/Not Resolved]
  - Application site vesicles [Not Recovered/Not Resolved]
